FAERS Safety Report 6102156-1 (Version None)
Quarter: 2009Q1

REPORT INFORMATION
  Report Type: 
  Country: None (occurrence: None)
  Receive Date: 20090304
  Receipt Date: 20090212
  Transmission Date: 20090719
  Serious: Yes (Death, Life-Threatening, Hospitalization, Disabling, Other)
  Sender: FDA-Public Use
  Company Number: PH-CELGENEUS-THAPH200700292

PATIENT
  Sex: Male

DRUGS (1)
  1. THALIDOMIDE [Suspect]
     Indication: MULTIPLE MYELOMA
     Route: 048
     Dates: start: 20070911, end: 20070912

REACTIONS (3)
  - ACUTE RESPIRATORY FAILURE [None]
  - PNEUMONIA [None]
  - SEPTIC SHOCK [None]
